FAERS Safety Report 9355590 (Version 1)
Quarter: 2013Q2

REPORT INFORMATION
  Report Type: Spontaneous
  Country: FR (occurrence: FR)
  Receive Date: 20130619
  Receipt Date: 20130619
  Transmission Date: 20140414
  Serious: Yes (Hospitalization)
  Sender: FDA-Public Use
  Company Number: FR-PFIZER INC-2013176010

PATIENT
  Age: 46 Year
  Sex: Female

DRUGS (3)
  1. MINIDRIL [Suspect]
     Indication: ORAL CONTRACEPTION
     Dosage: UNK
     Route: 048
     Dates: start: 2001, end: 20130327
  2. DEPAMIDE [Concomitant]
     Indication: ABNORMAL BEHAVIOUR
     Route: 048
  3. DEPAKINE [Concomitant]
     Indication: EPILEPSY
     Route: 048

REACTIONS (2)
  - Acute coronary syndrome [Recovered/Resolved]
  - Deep vein thrombosis [Recovered/Resolved]
